FAERS Safety Report 6725836-3 (Version None)
Quarter: 2010Q2

REPORT INFORMATION
  Report Type: 
  Country: None (occurrence: None)
  Receive Date: 20100514
  Receipt Date: 20100504
  Transmission Date: 20101027
  Serious: Yes (Hospitalization, Other)
  Sender: FDA-Public Use
  Company Number: PHHY2010SE29147

PATIENT
  Sex: Female

DRUGS (4)
  1. SYNTOCINON [Suspect]
     Indication: UTERINE HAEMORRHAGE
     Dosage: 30 E
  2. METHERGINE [Suspect]
     Indication: UTERINE HAEMORRHAGE
     Dosage: UNK
     Route: 042
     Dates: end: 20100205
  3. CYTOTEC [Suspect]
     Dosage: 0.6 MG
     Route: 060
  4. MISOPROSTOL [Concomitant]

REACTIONS (21)
  - ABDOMINAL PAIN [None]
  - AGITATION [None]
  - BLOOD CREATININE INCREASED [None]
  - CHILLS [None]
  - CONVULSION [None]
  - DEPRESSED LEVEL OF CONSCIOUSNESS [None]
  - DIPLOPIA [None]
  - DRUG INEFFECTIVE [None]
  - HALLUCINATION, VISUAL [None]
  - HYPERPYREXIA [None]
  - HYPERTENSION [None]
  - HYPERVENTILATION [None]
  - MUSCLE SPASMS [None]
  - MYDRIASIS [None]
  - MYOGLOBIN BLOOD INCREASED [None]
  - PALLOR [None]
  - RENAL FAILURE ACUTE [None]
  - RESTLESSNESS [None]
  - RHABDOMYOLYSIS [None]
  - TACHYCARDIA [None]
  - TREMOR [None]
